FAERS Safety Report 8535579-1 (Version None)
Quarter: 2012Q3

REPORT INFORMATION
  Report Type: 
  Country: None (occurrence: None)
  Receive Date: 20120725
  Receipt Date: 20120713
  Transmission Date: 20120928
  Serious: No
  Sender: FDA-Public Use
  Company Number: US-009507513-1207USA008419

PATIENT

DRUGS (2)
  1. JANUMET [Suspect]
     Indication: DIABETES MELLITUS
     Dosage: 50000 U AT NIGHT AND 5500 U IN THE DAY
     Dates: start: 20111101, end: 20120713
  2. BENICAR [Suspect]

REACTIONS (1)
  - PRURITUS [None]
